FAERS Safety Report 5350399-7 (Version None)
Quarter: 2007Q2

REPORT INFORMATION
  Report Type: 
  Country: None (occurrence: None)
  Receive Date: 20070605
  Receipt Date: 20070605
  Transmission Date: 20071010
  Serious: Yes (Other)
  Sender: FDA-Public Use
  Company Number: None

PATIENT
  Age: 6 Year
  Sex: Male
  Weight: 10.2059 kg

DRUGS (2)
  1. ADVATE [Suspect]
     Indication: FACTOR VIII DEFICIENCY
     Dosage: 510 UNITS 3X/WK IV
     Route: 042
     Dates: start: 20070521
  2. ADVATE [Suspect]
     Indication: FACTOR VIII DEFICIENCY
     Dosage: 510 UNITS 3X/WK IV
     Route: 042
     Dates: start: 20070523

REACTIONS (2)
  - CONVULSION [None]
  - INFUSION RELATED REACTION [None]
